FAERS Safety Report 7535423-5 (Version None)
Quarter: 2011Q2

REPORT INFORMATION
  Report Type: 
  Country: None (occurrence: None)
  Receive Date: 20110609
  Receipt Date: 20080530
  Transmission Date: 20111010
  Serious: Yes (Death)
  Sender: FDA-Public Use
  Company Number: PHFR2008GB01248

PATIENT
  Sex: Male

DRUGS (12)
  1. CITALOPRAM HYDROBROMIDE [Concomitant]
     Dosage: 60 MG/DAILY
  2. VALPROIC ACID [Concomitant]
     Dosage: UNK
  3. OMEPRAZOLE [Concomitant]
     Dosage: 20 MG, ONCE/SINGLE
  4. TRAZODONE HCL [Concomitant]
     Dosage: 100 MG/DAY
     Dates: start: 20080118
  5. PHENYTOIN SODIUM [Concomitant]
     Dosage: 400 MG, UNK
  6. PRAVASTATIN [Concomitant]
     Dosage: 20 MG/DAILY
  7. ALTACITE PLUS [Concomitant]
     Dosage: 10 MG, QD
  8. CLOZAPINE [Suspect]
     Indication: SCHIZOPHRENIA
     Dosage: 600 MG,
     Route: 048
     Dates: start: 19910814
  9. TRAZODONE HCL [Concomitant]
     Dosage: UNK,
  10. HYOSCINE [Concomitant]
     Dosage: 300 UG, BID
     Route: 048
  11. TEMAZEPAM [Concomitant]
     Dosage: 20 MG, UNK
  12. DIAZEPAM [Concomitant]
     Dosage: 5 MG (BD), PRN

REACTIONS (7)
  - DYSPNOEA [None]
  - ARTERIOSCLEROSIS [None]
  - CARDIOVASCULAR DISORDER [None]
  - CHEST PAIN [None]
  - RESPIRATORY DISORDER [None]
  - MYOCARDIAL ISCHAEMIA [None]
  - OBESITY [None]
